FAERS Safety Report 26131537 (Version 1)
Quarter: 2025Q4

REPORT INFORMATION
  Report Type: Spontaneous
  Country: AU (occurrence: AU)
  Receive Date: 20251208
  Receipt Date: 20251208
  Transmission Date: 20260118
  Serious: Yes (Hospitalization)
  Sender: ELI LILLY AND COMPANY
  Company Number: AU-ELI_LILLY_AND_COMPANY-AU202511031870

PATIENT
  Sex: Female

DRUGS (1)
  1. MOUNJARO [Suspect]
     Active Substance: TIRZEPATIDE
     Indication: Product used for unknown indication
     Dosage: UNK UNK, UNKNOWN
     Route: 065

REACTIONS (3)
  - Liver function test abnormal [Unknown]
  - Abdominal pain [Unknown]
  - Body mass index increased [Unknown]
